FAERS Safety Report 7429844-9 (Version None)
Quarter: 2011Q2

REPORT INFORMATION
  Report Type: 
  Country: None (occurrence: None)
  Receive Date: 20110421
  Receipt Date: 20110328
  Transmission Date: 20111010
  Serious: Yes (Other)
  Sender: FDA-Public Use
  Company Number: US-BAYER-201038072NA

PATIENT
  Age: 18 Year
  Sex: Female
  Weight: 136 kg

DRUGS (10)
  1. YAZ [Suspect]
     Indication: CONTRACEPTION
  2. NAPROXEN [Concomitant]
     Dosage: 440 MG, BID
     Route: 048
  3. NASONEX [Concomitant]
     Dosage: UNK UNK, PRN
  4. YASMIN [Suspect]
     Indication: PRODUCT USED FOR UNKNOWN INDICATION
  5. OCELLA [Suspect]
  6. ALLEGRA D 24 HOUR [Concomitant]
     Dosage: UNK
  7. ZYRTEC [Concomitant]
     Dosage: 10 MG, QD
     Route: 048
  8. ZOLOFT [Concomitant]
     Dosage: 100 MG, BID
  9. MULTI-VITAMIN [Concomitant]
     Dosage: UNK
     Route: 048
  10. IRON [Concomitant]
     Dosage: UNK
     Route: 048

REACTIONS (2)
  - INJURY [None]
  - CHOLELITHIASIS [None]
